FAERS Safety Report 8141217-2 (Version None)
Quarter: 2012Q1

REPORT INFORMATION
  Report Type: 
  Country: None (occurrence: None)
  Receive Date: 20120216
  Receipt Date: 20120208
  Transmission Date: 20120608
  Serious: Yes (Other)
  Sender: FDA-Public Use
  Company Number: TR-ABBOTT-12P-161-0899966-00

PATIENT
  Age: 6 Month

DRUGS (4)
  1. PHENOBARBITAL TAB [Concomitant]
  2. OXCARBAZEPINE [Concomitant]
  3. TOPIRAMATE [Concomitant]
  4. VALPROATE SODIUM [Suspect]
     Indication: PRODUCT USED FOR UNKNOWN INDICATION

REACTIONS (1)
  - CONVULSION [None]
